FAERS Safety Report 7942531-3 (Version None)
Quarter: 2011Q4

REPORT INFORMATION
  Report Type: 
  Country: None (occurrence: None)
  Receive Date: 20111128
  Receipt Date: 20111116
  Transmission Date: 20120403
  Serious: Yes (Hospitalization)
  Sender: FDA-Public Use
  Company Number: FR-GLAXOSMITHKLINE-B0763002A

PATIENT
  Sex: Female

DRUGS (4)
  1. DESLORATADINE [Suspect]
     Indication: ASTHMA
     Route: 048
     Dates: start: 20110101, end: 20111008
  2. NEISVAC-C [Suspect]
     Indication: PROPHYLAXIS
     Route: 030
     Dates: start: 20111001, end: 20111001
  3. VENTOLIN [Suspect]
     Indication: ASTHMA
     Route: 055
     Dates: start: 20110101, end: 20111008
  4. GARDASIL [Suspect]
     Indication: PROPHYLAXIS
     Route: 030
     Dates: start: 20110830, end: 20110830

REACTIONS (4)
  - PANCREATITIS ACUTE [None]
  - ASCITES [None]
  - OEDEMA [None]
  - ABDOMINAL PAIN [None]
